FAERS Safety Report 6463119-X (Version None)
Quarter: 2009Q4

REPORT INFORMATION
  Report Type: 
  Country: None (occurrence: None)
  Receive Date: 20091130
  Receipt Date: 20091117
  Transmission Date: 20100525
  Serious: Yes (Hospitalization, Other)
  Sender: FDA-Public Use
  Company Number: US-ELI_LILLY_AND_COMPANY-US200911005057

PATIENT
  Age: 71 Year
  Sex: Female

DRUGS (16)
  1. CYMBALTA [Suspect]
     Dosage: 30 D/F, UNK
     Dates: start: 20071201, end: 20080301
  2. CYMBALTA [Suspect]
     Dates: start: 20090101, end: 20090101
  3. LISINOPRIL [Concomitant]
     Dosage: 10 D/F, UNK
     Dates: end: 20080301
  4. NEXIUM [Concomitant]
     Dosage: 40 D/F, DAILY (1/D)
  5. CLONOPIN [Concomitant]
     Dosage: 1 MG, EACH EVENING
     Dates: end: 20080301
  6. CRESTOR [Concomitant]
     Dosage: 5 D/F, UNK
  7. REMERON [Concomitant]
     Dosage: 30 D/F, EACH EVENING
     Dates: end: 20071201
  8. SYNTHROID [Concomitant]
     Dosage: 0.05 D/F, DAILY (1/D)
     Dates: end: 20080301
  9. SYNTHROID [Concomitant]
     Dosage: 0.075 D/F, DAILY (1/D)
     Dates: start: 20080301
  10. LASIX [Concomitant]
     Dosage: 80 D/F, DAILY (1/D)
  11. LOPRESSOR [Concomitant]
     Dosage: 50 D/F, UNK
  12. VITAMIN D [Concomitant]
     Dosage: 50000 D/F, WEEKLY (1/W)
     Dates: end: 20080301
  13. COUMADIN [Concomitant]
     Dosage: 5 D/F, UNK
     Dates: end: 20080101
  14. COUMADIN [Concomitant]
     Dosage: 2 D/F, DAILY (1/D)
     Dates: start: 20080101
  15. GLIPIZIDE [Concomitant]
     Dosage: 5 D/F, 2/D
     Dates: end: 20080301
  16. GLIPIZIDE [Concomitant]
     Dosage: 5 D/F, DAILY (1/D)
     Dates: start: 20080301

REACTIONS (3)
  - AMMONIA INCREASED [None]
  - HEPATIC ENCEPHALOPATHY [None]
  - PARKINSON'S DISEASE [None]
